FAERS Safety Report 7070112-5 (Version None)
Quarter: 2010Q4

REPORT INFORMATION
  Report Type: 
  Country: None (occurrence: None)
  Receive Date: 20101028
  Receipt Date: 20100901
  Transmission Date: 20110411
  Serious: No
  Sender: FDA-Public Use
  Company Number: US-WYE-H17329910

PATIENT
  Sex: Female
  Weight: 81.72 kg

DRUGS (11)
  1. EFFEXOR [Suspect]
     Indication: DEPRESSION
     Route: 048
     Dates: start: 20050101
  2. EFFEXOR [Suspect]
     Indication: RESTLESS LEGS SYNDROME
     Dosage: UNKNOWN
     Route: 048
     Dates: end: 20100101
  3. EFFEXOR [Suspect]
     Indication: NARCOLEPSY
     Dosage: UNKNOWN
     Route: 048
     Dates: start: 20100101
  4. METHYLPHENIDATE [Concomitant]
  5. ATENOLOL [Concomitant]
  6. HYDROCHLOROTHIAZIDE [Concomitant]
  7. GABAPENTIN [Concomitant]
  8. VENLAFAXINE HYDROCHLORIDE [Suspect]
     Dosage: UNKNOWN
     Route: 048
     Dates: start: 20100101, end: 20100101
  9. LEVOTHYROXINE [Concomitant]
  10. METHYLPHENIDATE HCL [Concomitant]
  11. BUPROPION HYDROCHLORIDE [Concomitant]

REACTIONS (5)
  - CONDITION AGGRAVATED [None]
  - DRUG INEFFECTIVE FOR UNAPPROVED INDICATION [None]
  - MALAISE [None]
  - PAIN [None]
  - RESTLESS LEGS SYNDROME [None]
